FAERS Safety Report 6661257-X (Version None)
Quarter: 2010Q1

REPORT INFORMATION
  Report Type: 
  Country: None (occurrence: None)
  Receive Date: 20100331
  Receipt Date: 20100329
  Transmission Date: 20100710
  Serious: Yes (Life-Threatening, Disabling)
  Sender: FDA-Public Use
  Company Number: DK-B.I. PHARMACEUTICALS,INC./RIDGEFIELD-2010-SW-00099DB

PATIENT
  Sex: Male
  Weight: 68 kg

DRUGS (3)
  1. ASASANTIN RETARD [Suspect]
     Indication: THROMBOSIS PROPHYLAXIS
     Dosage: 50 MG
     Route: 048
     Dates: start: 20080711, end: 20091220
  2. HJERTEMAGNYL [Suspect]
     Indication: THROMBOSIS PROPHYLAXIS
     Dosage: 75 MG
     Route: 048
     Dates: start: 20091215, end: 20091220
  3. SIMVASTATIN [Concomitant]
     Indication: BLOOD CHOLESTEROL INCREASED
     Dosage: 40 MG
     Route: 048
     Dates: start: 20080711

REACTIONS (1)
  - CEREBRAL HAEMORRHAGE [None]
